FAERS Safety Report 4381585-0 (Version None)
Quarter: 2004Q2

REPORT INFORMATION
  Report Type: 
  Country: None (occurrence: None)
  Receive Date: 20040614
  Receipt Date: 20030908
  Transmission Date: 20050107
  Serious: Yes (Hospitalization)
  Sender: FDA-Public Use
  Company Number: WAES 0309USA00908

PATIENT
  Age: 73 Year
  Sex: Female

DRUGS (6)
  1. COZAAR [Suspect]
     Indication: HYPERTENSION
     Dosage: 50 MG/DAILY/PO
     Route: 048
     Dates: start: 20020601, end: 20030825
  2. BUMEX [Concomitant]
  3. COUMADIN [Concomitant]
  4. LANOXIN [Concomitant]
  5. LEXAPRO [Concomitant]
  6. ZOCOR [Concomitant]

REACTIONS (4)
  - ANGIONEUROTIC OEDEMA [None]
  - BRONCHITIS [None]
  - DYSPNOEA [None]
  - HOARSENESS [None]
